FAERS Safety Report 5133140-2 (Version None)
Quarter: 2006Q4

REPORT INFORMATION
  Report Type: 
  Country: None (occurrence: None)
  Receive Date: 20061017
  Receipt Date: 20061004
  Transmission Date: 20070319
  Serious: Yes (Hospitalization, Other)
  Sender: FDA-Public Use
  Company Number: 2006121101

PATIENT
  Age: 48 Year
  Sex: Male

DRUGS (1)
  1. LITHIUM CARBONATE [Suspect]
     Indication: BIPOLAR I DISORDER
     Dosage: UNKNOWN
     Dates: start: 19870101

REACTIONS (8)
  - BUNDLE BRANCH BLOCK RIGHT [None]
  - CONGESTIVE CARDIOMYOPATHY [None]
  - DEPRESSION [None]
  - EJECTION FRACTION DECREASED [None]
  - ELECTROCARDIOGRAM T WAVE INVERSION [None]
  - HYPOTHYROIDISM [None]
  - VENTRICULAR HYPOKINESIA [None]
  - WEIGHT INCREASED [None]
